FAERS Safety Report 8619868-8 (Version None)
Quarter: 2012Q3

REPORT INFORMATION
  Report Type: 
  Country: None (occurrence: None)
  Receive Date: 20120816
  Receipt Date: 20120816
  Transmission Date: 20120928
  Serious: Yes (Other)
  Sender: FDA-Public Use
  Company Number: None

PATIENT
  Sex: Female
  Weight: 78.47 kg

DRUGS (2)
  1. LIPODOX 50 -2MG/ML - 25 ML SUN MANF / LIPODOX 50 [Suspect]
     Indication: OVARIAN CANCER
     Dosage: 90MG FIRST DOSE IV DRIP
     Route: 041
     Dates: start: 20120814, end: 20120814
  2. LIPODOX 10 -2MG/ML - 10ML- SUN MANF/LIPODOX [Suspect]

REACTIONS (3)
  - FLUSHING [None]
  - SYNCOPE [None]
  - DYSPNOEA [None]
